FAERS Safety Report 14553441 (Version 5)
Quarter: 2018Q2

REPORT INFORMATION
  Report Type: Spontaneous
  Country: GB (occurrence: GB)
  Receive Date: 20180220
  Receipt Date: 20180621
  Transmission Date: 20180711
  Serious: Yes (Life-Threatening, Hospitalization)
  Sender: FDA-Public Use
  Company Number: GB-TEVA-2018-GB-857839

PATIENT
  Age: 47 Year
  Sex: Female

DRUGS (3)
  1. ABACAVIR W/LAMIVUDINE [Suspect]
     Active Substance: ABACAVIR\LAMIVUDINE
     Indication: HIV INFECTION
     Dosage: 1 DOSAGE FORMS DAILY;
     Route: 048
     Dates: start: 20170501, end: 20171216
  2. EFAVIRENZ. [Suspect]
     Active Substance: EFAVIRENZ
     Route: 048
  3. EFAVIRENZ. [Suspect]
     Active Substance: EFAVIRENZ
     Indication: HIV INFECTION
     Dosage: 600 MILLIGRAM DAILY;
     Route: 048
     Dates: start: 20170501, end: 20170516

REACTIONS (2)
  - Acute hepatic failure [Not Recovered/Not Resolved]
  - Product substitution issue [Unknown]

NARRATIVE: CASE EVENT DATE: 20171107
